FAERS Safety Report 7574766-6 (Version None)
Quarter: 2011Q2

REPORT INFORMATION
  Report Type: 
  Country: None (occurrence: None)
  Receive Date: 20110627
  Receipt Date: 20110606
  Transmission Date: 20111010
  Serious: Yes (Hospitalization, Other)
  Sender: FDA-Public Use
  Company Number: US-BAYER-201034569NA

PATIENT
  Age: 37 Year
  Sex: Female
  Weight: 87.8 kg

DRUGS (7)
  1. MOTRIN [Concomitant]
     Dosage: UNK UNK, PRN
  2. ANTIBIOTICS [Concomitant]
     Dosage: UNK UNK, PRN
  3. YASMIN [Suspect]
     Indication: CONTRACEPTION
     Route: 048
     Dates: start: 20070701, end: 20080201
  4. DROSPIRENONE AND ETHINYL ESTRADIOL [Suspect]
     Indication: CONTRACEPTION
     Route: 048
     Dates: start: 20080701, end: 20081101
  5. ADVIL LIQUI-GELS [Concomitant]
     Dosage: UNK UNK, PRN
  6. LOVENOX [Concomitant]
  7. IBUPROFEN [Concomitant]
     Dosage: UNK UNK, PRN

REACTIONS (4)
  - PARAESTHESIA [None]
  - PAIN IN EXTREMITY [None]
  - DEEP VEIN THROMBOSIS [None]
  - OEDEMA PERIPHERAL [None]
